FAERS Safety Report 11044378 (Version 1)
Quarter: 2015Q2

REPORT INFORMATION
  Report Type: Spontaneous
  Country: US (occurrence: None)
  Receive Date: 20150416
  Receipt Date: 20150416
  Transmission Date: 20150821
  Serious: Yes (Life-Threatening, Hospitalization)
  Sender: FDA-Public Use
  Company Number: None

PATIENT
  Age: 83 Year
  Sex: Female

DRUGS (9)
  1. INDAPAMIDE. [Concomitant]
     Active Substance: INDAPAMIDE
  2. XARELTO [Suspect]
     Active Substance: RIVAROXABAN
     Route: 048
     Dates: start: 20150303, end: 20150415
  3. AMIODARONE [Concomitant]
     Active Substance: AMIODARONE
  4. OMEPRAZOLE. [Concomitant]
     Active Substance: OMEPRAZOLE
  5. METOPROLOL XL [Concomitant]
     Active Substance: METOPROLOL
  6. FISH OIL [Concomitant]
     Active Substance: FISH OIL
  7. SIMVASTATIN. [Concomitant]
     Active Substance: SIMVASTATIN
  8. LISINOPRIL. [Concomitant]
     Active Substance: LISINOPRIL
  9. METFORMIN [Concomitant]
     Active Substance: METFORMIN HYDROCHLORIDE

REACTIONS (1)
  - Gastrointestinal haemorrhage [None]

NARRATIVE: CASE EVENT DATE: 20150415
